FAERS Safety Report 4392016-9 (Version None)
Quarter: 2004Q3

REPORT INFORMATION
  Report Type: 
  Country: None (occurrence: None)
  Receive Date: 20040702
  Receipt Date: 20040624
  Transmission Date: 20050211
  Serious: Yes (Hospitalization)
  Sender: FDA-Public Use
  Company Number: 2004IC000305

PATIENT
  Age: 39 Year
  Sex: Female

DRUGS (2)
  1. FLUOROURACIL [Suspect]
     Indication: ADENOCARCINOMA OF THE CERVIX
  2. CISPLATIN [Suspect]
     Indication: ADENOCARCINOMA OF THE CERVIX
     Dosage: INTRAVENOUS
     Route: 042

REACTIONS (9)
  - BUNDLE BRANCH BLOCK RIGHT [None]
  - CARDIAC STRESS TEST ABNORMAL [None]
  - CORONARY ARTERY DISSECTION [None]
  - CORONARY ARTERY OCCLUSION [None]
  - DEHYDRATION [None]
  - HAEMATOMA [None]
  - MYOCARDIAL INFARCTION [None]
  - SCAR [None]
  - VOMITING [None]
